FAERS Safety Report 8375511-7 (Version None)
Quarter: 2012Q1

REPORT INFORMATION
  Report Type: 
  Country: None (occurrence: None)
  Receive Date: 20120323
  Receipt Date: 20110228
  Transmission Date: 20120608
  Serious: Yes (Other)
  Sender: FDA-Public Use
  Company Number: 163-21880-11030271

PATIENT
  Age: 77 Year
  Sex: Male
  Weight: 58.9676 kg

DRUGS (9)
  1. REVLIMID [Suspect]
     Indication: MULTIPLE MYELOMA
     Dosage: 15 MG, QD D1-14, PO
     Route: 048
     Dates: start: 20101201, end: 20110228
  2. ATENOLOL [Concomitant]
  3. TERAZOSIN (TERAZOSIN) (UNKNOWN) [Concomitant]
  4. SENOKOT (SENNA FRUIT) (UNKNOWN) [Concomitant]
  5. CALCIUM (CALCIUM) (UNKNOWN) [Concomitant]
  6. MVI (MVI) (UNKNOWN) [Concomitant]
  7. OXYCODONE (OXYCODONE) (UNKNOWN) [Concomitant]
  8. OMEPRAZOLE [Concomitant]
  9. ASPIRIN [Concomitant]

REACTIONS (2)
  - PROTEIN TOTAL INCREASED [None]
  - DRUG INTOLERANCE [None]
